FAERS Safety Report 8184664-5 (Version None)
Quarter: 2012Q1

REPORT INFORMATION
  Report Type: 
  Country: None (occurrence: None)
  Receive Date: 20120210
  Receipt Date: 20110505
  Transmission Date: 20120608
  Serious: Yes (Death)
  Sender: FDA-Public Use
  Company Number: DAV-AE-MTX-11-035

PATIENT
  Age: 54 Year
  Sex: Female
  Weight: 73.0291 kg

DRUGS (2)
  1. METHOTREXATE [Suspect]
     Indication: RHEUMATOID ARTHRITIS
     Dosage: 7.5 MG/WK
     Dates: start: 20110413
  2. PREDNISONE [Concomitant]

REACTIONS (3)
  - FATIGUE [None]
  - HYPERHIDROSIS [None]
  - CHILLS [None]
